FAERS Safety Report 16402129 (Version 2)
Quarter: 2019Q3

REPORT INFORMATION
  Report Type: Spontaneous
  Country: JP (occurrence: JP)
  Receive Date: 20190607
  Receipt Date: 20190702
  Transmission Date: 20191004
  Serious: Yes (Death)
  Sender: FDA-Public Use
  Company Number: GXJP2019JP001032

PATIENT
  Age: 70 Year
  Sex: Male

DRUGS (8)
  1. ETHAMBUTOL DIHYDROCHLORIDE [Suspect]
     Active Substance: ETHAMBUTOL HYDROCHLORIDE
     Indication: DIAPHRAGMATIC DISORDER
  2. RIFAMPICIN CAPSULES [Suspect]
     Active Substance: RIFAMPIN
     Indication: DIAPHRAGMATIC DISORDER
  3. ISONIAZID. [Suspect]
     Active Substance: ISONIAZID
     Indication: DIAPHRAGMATIC DISORDER
  4. PYRAZINAMIDE. [Suspect]
     Active Substance: PYRAZINAMIDE
     Indication: PULMONARY TUBERCULOSIS
     Dosage: UNK
     Route: 048
  5. ETHAMBUTOL DIHYDROCHLORIDE [Suspect]
     Active Substance: ETHAMBUTOL HYDROCHLORIDE
     Indication: PULMONARY TUBERCULOSIS
     Dosage: UNK
     Route: 048
  6. RIFAMPICIN CAPSULES [Suspect]
     Active Substance: RIFAMPIN
     Indication: PULMONARY TUBERCULOSIS
     Dosage: 450 MG, UNK
     Route: 048
  7. ISONIAZID. [Suspect]
     Active Substance: ISONIAZID
     Indication: PULMONARY TUBERCULOSIS
     Dosage: UNK
     Route: 048
  8. PYRAZINAMIDE. [Suspect]
     Active Substance: PYRAZINAMIDE
     Indication: DIAPHRAGMATIC DISORDER

REACTIONS (5)
  - Pneumonia aspiration [Fatal]
  - General physical health deterioration [Fatal]
  - Concomitant disease aggravated [Fatal]
  - Product use in unapproved indication [Unknown]
  - Liver disorder [Fatal]
